FAERS Safety Report 7277760-8 (Version None)
Quarter: 2011Q1

REPORT INFORMATION
  Report Type: 
  Country: None (occurrence: None)
  Receive Date: 20110207
  Receipt Date: 20100216
  Transmission Date: 20110831
  Serious: No
  Sender: FDA-Public Use
  Company Number: A0841030A

PATIENT
  Age: 83 Year
  Sex: Female

DRUGS (8)
  1. LISINOPRIL [Concomitant]
  2. CORTISONE [Concomitant]
  3. UNKNOWN [Concomitant]
  4. LOVASTATIN [Concomitant]
  5. ASPIRIN [Concomitant]
  6. ATENOLOL [Concomitant]
  7. OLUX E [Suspect]
     Indication: PSORIASIS
     Dosage: 1APP TWICE PER DAY
     Route: 061
     Dates: start: 20100109
  8. LEVOTHYROXINE SODIUM [Concomitant]

REACTIONS (2)
  - NAIL DISCOLOURATION [None]
  - NAIL DISORDER [None]
